FAERS Safety Report 23092197 (Version 2)
Quarter: 2024Q1

REPORT INFORMATION
  Report Type: Report from Study
  Country: FR (occurrence: FR)
  Receive Date: 20231021
  Receipt Date: 20240112
  Transmission Date: 20240409
  Serious: Yes (Other)
  Sender: FDA-Public Use
  Company Number: FR-SA-2019SA221741

PATIENT
  Age: 15 Year
  Sex: Female

DRUGS (1)
  1. LEVOCETIRIZINE DIHYDROCHLORIDE [Suspect]
     Active Substance: LEVOCETIRIZINE DIHYDROCHLORIDE
     Indication: Suicide attempt
     Dosage: DOSE DESCRIPTION : 7 DF (0.67 MG/KG: 5 MG)
     Route: 048

REACTIONS (5)
  - Blindness [Unknown]
  - Intentional overdose [Unknown]
  - Toxicity to various agents [Unknown]
  - Delirium [Unknown]
  - Hallucination [Unknown]
